FAERS Safety Report 5929304-8 (Version None)
Quarter: 2008Q4

REPORT INFORMATION
  Report Type: 
  Country: None (occurrence: None)
  Receive Date: 20081023
  Receipt Date: 20081023
  Transmission Date: 20090506
  Serious: No
  Sender: FDA-Public Use
  Company Number: None

PATIENT
  Age: 25 Year
  Sex: Male

DRUGS (2)
  1. ACYCLOVIR [Suspect]
     Dosage: 900 MG TID
  2. AMPHOTERICIN B [Concomitant]

REACTIONS (1)
  - RENAL INJURY [None]
